FAERS Safety Report 14363834 (Version 3)
Quarter: 2018Q1

REPORT INFORMATION
  Report Type: Report from Study
  Country: PT (occurrence: PT)
  Receive Date: 20180108
  Receipt Date: 20180313
  Transmission Date: 20180509
  Serious: Yes (Hospitalization)
  Sender: FDA-Public Use
  Company Number: PT-ASTRAZENECA-2018SE02165

PATIENT
  Age: 32 Year
  Sex: Female
  Weight: 68 kg

DRUGS (8)
  1. OLAPARIB. [Suspect]
     Active Substance: OLAPARIB
     Indication: BREAST CANCER
     Route: 048
     Dates: start: 20171212, end: 20171220
  2. EXEMESTANE. [Concomitant]
     Active Substance: EXEMESTANE
     Indication: PROPHYLAXIS
     Dates: start: 20170520
  3. SEDOXIL [Concomitant]
     Active Substance: MEXAZOLAM
     Indication: SUPPORTIVE CARE
     Dosage: 4.0MG AS REQUIRED
     Dates: start: 201703
  4. METOCLOPRAMIDE. [Concomitant]
     Active Substance: METOCLOPRAMIDE
     Indication: PROPHYLAXIS
     Dosage: 10.0MG AS REQUIRED
     Dates: start: 20170930
  5. ESCITALOPRAM [Concomitant]
     Active Substance: ESCITALOPRAM OXALATE
     Indication: PROPHYLAXIS
     Dates: start: 201703
  6. GOSERELIN [Concomitant]
     Active Substance: GOSERELIN
     Indication: PROPHYLAXIS
     Dates: start: 20170520
  7. OLAPARIB. [Suspect]
     Active Substance: OLAPARIB
     Indication: BREAST CANCER
     Route: 048
     Dates: start: 20170824, end: 20171113
  8. TRAZODONE [Concomitant]
     Active Substance: TRAZODONE HYDROCHLORIDE
     Indication: PROPHYLAXIS
     Dates: start: 201703

REACTIONS (1)
  - Wound dehiscence [Recovered/Resolved]

NARRATIVE: CASE EVENT DATE: 20171220
